FAERS Safety Report 5096470-9 (Version None)
Quarter: 2006Q3

REPORT INFORMATION
  Report Type: 
  Country: None (occurrence: None)
  Receive Date: 20060905
  Receipt Date: 20060803
  Transmission Date: 20061208
  Serious: Yes (Hospitalization)
  Sender: FDA-Public Use
  Company Number: FR-SANOFI-SYNTHELABO-A02200601993

PATIENT
  Age: 66 Year
  Sex: Male

DRUGS (4)
  1. CIFLOX [Suspect]
     Indication: PROSTATITIS
     Dosage: UNK
     Route: 048
     Dates: start: 20060506, end: 20060603
  2. NIFLURIL [Suspect]
     Indication: PROSTATITIS
     Dosage: UNK
     Route: 048
     Dates: start: 20060603, end: 20060604
  3. XATRAL [Suspect]
     Indication: PROSTATITIS
     Dosage: UNK
     Route: 048
     Dates: start: 20060429, end: 20060606
  4. FURADANTIN [Suspect]
     Indication: PROSTATITIS
     Dosage: UNK
     Route: 048
     Dates: start: 20060603, end: 20060604

REACTIONS (4)
  - BLISTER [None]
  - BLOOD BLISTER [None]
  - EOSINOPHILIA [None]
  - RASH MACULO-PAPULAR [None]
